FAERS Safety Report 6749621-1 (Version None)
Quarter: 2010Q2

REPORT INFORMATION
  Report Type: 
  Country: None (occurrence: None)
  Receive Date: 20100601
  Receipt Date: 20100526
  Transmission Date: 20101027
  Serious: Yes (Other)
  Sender: FDA-Public Use
  Company Number: A0861474A

PATIENT
  Age: 52 Year
  Sex: Female

DRUGS (2)
  1. VENTOLIN [Suspect]
     Indication: ASTHMA
     Route: 055
  2. ADVAIR DISKUS 100/50 [Concomitant]

REACTIONS (5)
  - DYSPHONIA [None]
  - EYE HAEMORRHAGE [None]
  - FOREIGN BODY ASPIRATION [None]
  - PRODUCT QUALITY ISSUE [None]
  - THROAT IRRITATION [None]
